FAERS Safety Report 4899205-5 (Version None)
Quarter: 2006Q1

REPORT INFORMATION
  Report Type: 
  Country: None (occurrence: None)
  Receive Date: 20060131
  Receipt Date: 20060125
  Transmission Date: 20060701
  Serious: Yes (Hospitalization)
  Sender: FDA-Public Use
  Company Number: 200511052BVD

PATIENT
  Age: 82 Year
  Sex: Male
  Weight: 95 kg

DRUGS (12)
  1. AVELOX [Suspect]
     Indication: CHRONIC OBSTRUCTIVE PULMONARY DISEASE
     Dosage: 400 MG, TOTAL DAILY, ORAL
     Route: 048
     Dates: start: 20051101, end: 20051107
  2. BRONCHORETARD [Concomitant]
  3. PULMICORT [Concomitant]
  4. OXIS [Concomitant]
  5. LISINOPRIL [Concomitant]
  6. FUROSEMIDE [Concomitant]
  7. ALLOPURINOL [Concomitant]
  8. OMEPRAZOLE [Concomitant]
  9. ASPIRIN [Concomitant]
  10. DECORTIN H [Concomitant]
  11. ACC [Concomitant]
  12. DOXEPIN HCL [Concomitant]

REACTIONS (4)
  - CONFUSIONAL STATE [None]
  - DIARRHOEA [None]
  - MENTAL DISORDER [None]
  - MENTAL STATUS CHANGES [None]
